FAERS Safety Report 16901113 (Version 1)
Quarter: 2019Q4

REPORT INFORMATION
  Report Type: Spontaneous
  Country: US (occurrence: US)
  Receive Date: 20191009
  Receipt Date: 20191009
  Transmission Date: 20200122
  Serious: Yes (Other)
  Sender: FDA-Public Use
  Company Number: US-PFIZER INC-2019431272

PATIENT
  Age: 50 Year
  Sex: Female
  Weight: 70.76 kg

DRUGS (1)
  1. ADVIL LIQUI-GELS [Suspect]
     Active Substance: IBUPROFEN
     Indication: PAIN MANAGEMENT
     Dosage: 2 DF, DAILY (TWO PILLS AT NIGHT, AS NEEDED)
     Route: 048
     Dates: start: 201708, end: 201906

REACTIONS (3)
  - Cholecystitis [Unknown]
  - Ulcer [Recovering/Resolving]
  - Gastrooesophageal reflux disease [Unknown]

NARRATIVE: CASE EVENT DATE: 2017
